FAERS Safety Report 13674484 (Version 3)
Quarter: 2017Q4

REPORT INFORMATION
  Report Type: Report from Study
  Country: GB (occurrence: GB)
  Receive Date: 20170621
  Receipt Date: 20171109
  Transmission Date: 20180320
  Serious: Yes (Hospitalization, Other)
  Sender: FDA-Public Use
  Company Number: GB-AMGEN-GBRSL2017064791

PATIENT
  Age: 72 Year
  Sex: Male

DRUGS (1)
  1. ARANESP [Suspect]
     Active Substance: DARBEPOETIN ALFA
     Indication: PRODUCT USED FOR UNKNOWN INDICATION
     Dosage: 20 MUG, UNK
     Route: 065

REACTIONS (7)
  - Peritonitis [Unknown]
  - Device related infection [Unknown]
  - Cardiac disorder [Unknown]
  - Myocardial infarction [Unknown]
  - Acute kidney injury [Not Recovered/Not Resolved]
  - Haemodialysis [Not Recovered/Not Resolved]
  - Heart valve operation [Unknown]

NARRATIVE: CASE EVENT DATE: 2017
